FAERS Safety Report 9301617 (Version 1)
Quarter: 2013Q2

REPORT INFORMATION
  Report Type: Spontaneous
  Country: US (occurrence: None)
  Receive Date: 20130520
  Receipt Date: 20130520
  Transmission Date: 20140414
  Serious: Yes (Other)
  Sender: FDA-Public Use
  Company Number: None

PATIENT
  Age: 34 Year
  Sex: Female
  Weight: 54.89 kg

DRUGS (4)
  1. FENTANYL [Suspect]
     Indication: BACK PAIN
     Dosage: FENTANYL, EVERY 72 HRS, TRANSDERMAL
     Route: 062
     Dates: start: 20110909, end: 20111115
  2. FENTANYL [Suspect]
     Indication: INTERVERTEBRAL DISC DEGENERATION
     Dosage: FENTANYL, EVERY 72 HRS, TRANSDERMAL
     Route: 062
     Dates: start: 20110909, end: 20111115
  3. VICODEN [Concomitant]
  4. OXYCODONE [Concomitant]

REACTIONS (1)
  - Drug eruption [None]
